FAERS Safety Report 4567763-6 (Version None)
Quarter: 2005Q1

REPORT INFORMATION
  Report Type: 
  Country: None (occurrence: None)
  Receive Date: 20050125
  Receipt Date: 20050125
  Transmission Date: 20050727
  Serious: Yes (Other)
  Sender: FDA-Public Use
  Company Number: None

PATIENT
  Age: 56 Year
  Sex: Female
  Weight: 68.0396 kg

DRUGS (2)
  1. VIOXX [Suspect]
     Indication: ARTHRITIS
     Dosage: AS NEEDED 1X/ OVER 1 YEAR
  2. LOVASTATIN [Suspect]
     Indication: BLOOD CHOLESTEROL
     Dosage: NIGHT 1X/ LESS THAN A YEAR

REACTIONS (2)
  - B-CELL LYMPHOMA STAGE IV [None]
  - METASTASES TO LIVER [None]
